FAERS Safety Report 10040352 (Version 1)
Quarter: 2014Q1

REPORT INFORMATION
  Report Type: Spontaneous
  Country: US (occurrence: US)
  Receive Date: 20140327
  Receipt Date: 20140327
  Transmission Date: 20141002
  Serious: No
  Sender: FDA-Public Use
  Company Number: US-BIOGENIDEC-2014BI027866

PATIENT
  Age: 61 Year
  Sex: Female

DRUGS (8)
  1. AVONEX [Suspect]
     Indication: MULTIPLE SCLEROSIS
     Route: 030
     Dates: start: 20110321
  2. BACLOFEN [Concomitant]
  3. GABAPENTIN [Concomitant]
  4. NITROFURANTOIN MACROCRYSTAL [Concomitant]
  5. OXYBUTYNIN  CHLORIDE [Concomitant]
  6. PAROXETINE HCL [Concomitant]
  7. PAXIL [Concomitant]
  8. TRAMADOL HCL [Concomitant]

REACTIONS (2)
  - Flushing [Unknown]
  - Pruritus [Unknown]
